FAERS Safety Report 6013451-9 (Version None)
Quarter: 2008Q4

REPORT INFORMATION
  Report Type: 
  Country: None (occurrence: None)
  Receive Date: 20081219
  Receipt Date: 20081208
  Transmission Date: 20090506
  Serious: Yes (Life-Threatening)
  Sender: FDA-Public Use
  Company Number: US-PFIZER INC-2008085481

PATIENT
  Sex: Female
  Weight: 116 kg

DRUGS (10)
  1. EXEMESTANE [Suspect]
     Indication: BREAST CANCER METASTATIC
     Dosage: 25 MG, 1X/DAY, INTERVAL 28 DAYS
     Route: 048
     Dates: start: 20080422, end: 20081010
  2. EXEMESTANE [Suspect]
     Dosage: 25 MG, 1X/DAY, INTERVAL 28 DAYS
     Route: 048
     Dates: start: 20081014
  3. SUNITINIB MALATE [Suspect]
     Indication: BREAST CANCER METASTATIC
     Dosage: 37.5MG, 1X/DAY, INTERVAL 28 DAYS
     Route: 048
     Dates: start: 20080422, end: 20081010
  4. SUNITINIB MALATE [Suspect]
     Dosage: 37.5MG, 1X/DAY, INTERVAL 28 DAYS
     Route: 048
     Dates: start: 20081014
  5. VENLAFAXINE HYDROCHLORIDE [Concomitant]
     Route: 048
     Dates: start: 20010401
  6. METFORMIN HCL [Concomitant]
     Route: 048
     Dates: start: 20071201
  7. PANTOPRAZOLE SODIUM [Concomitant]
     Route: 048
     Dates: start: 19820101
  8. AMLODIPINE [Concomitant]
     Route: 048
     Dates: start: 20080812
  9. OLMESARTAN MEDOXOMIL [Concomitant]
     Route: 048
     Dates: start: 20080812
  10. HYDROCHLOROTHIAZIDE [Concomitant]
     Route: 048
     Dates: start: 20080920

REACTIONS (1)
  - PULMONARY EMBOLISM [None]
